FAERS Safety Report 21384972 (Version 2)
Quarter: 2022Q4

REPORT INFORMATION
  Report Type: Spontaneous
  Country: US (occurrence: US)
  Receive Date: 20220928
  Receipt Date: 20221216
  Transmission Date: 20230113
  Serious: No
  Sender: FDA-Public Use
  Company Number: US-AVEO ONCOLOGY-2022-AVEO-US000275

PATIENT

DRUGS (1)
  1. FOTIVDA [Suspect]
     Active Substance: TIVOZANIB HYDROCHLORIDE
     Indication: Renal cell carcinoma
     Dosage: 1.34 MG, DAILY FOR 21 DAYS ON WITH 7 DAYS OFF ( 28-DAY CYCLE)
     Route: 048
     Dates: start: 20220323, end: 2022

REACTIONS (8)
  - Fatigue [Unknown]
  - Asthenia [Unknown]
  - Arthralgia [Recovering/Resolving]
  - Vomiting [Unknown]
  - Headache [Unknown]
  - Rash [Unknown]
  - Malignant neoplasm progression [Unknown]
  - Joint stiffness [Recovering/Resolving]

NARRATIVE: CASE EVENT DATE: 20220609
